FAERS Safety Report 19034989 (Version 1)
Quarter: 2021Q1

REPORT INFORMATION
  Report Type: Spontaneous
  Country: DE (occurrence: DE)
  Receive Date: 20210320
  Receipt Date: 20210320
  Transmission Date: 20210420
  Serious: Yes (Other)
  Sender: FDA-Public Use
  Company Number: DE-ASTRAZENECA-2021A164703

PATIENT
  Sex: Female
  Weight: 66 kg

DRUGS (2)
  1. ROFLUMILAST. [Suspect]
     Active Substance: ROFLUMILAST
     Route: 048
  2. BERODUAL [Concomitant]
     Active Substance: FENOTEROL HYDROBROMIDE\IPRATROPIUM BROMIDE

REACTIONS (4)
  - Hypercapnia [Unknown]
  - Hypoxia [Unknown]
  - Obstructive airways disorder [Unknown]
  - Emphysema [Unknown]
